FAERS Safety Report 8696255 (Version 2)
Quarter: 2012Q4

REPORT INFORMATION
  Report Type: 
  Country: US (occurrence: US)
  Receive Date: 20120801
  Receipt Date: 20120923
  Transmission Date: 20130627
  Serious: Yes (Death)
  Sender: FDA-Public Use
  Company Number: US-009507513-1207USA010493

PATIENT
  Sex: Male
  Weight: 48.73 kg

DRUGS (5)
  1. ISENTRESS [Suspect]
     Indication: HIV INFECTION
     Dosage: 400 mg, bid
     Route: 048
     Dates: start: 20081216, end: 20120319
  2. INTELENCE [Concomitant]
  3. SELZENTRY [Concomitant]
  4. NORVIR [Concomitant]
  5. PREZISTA [Concomitant]

REACTIONS (1)
  - Squamous cell carcinoma [Fatal]
